FAERS Safety Report 25240173 (Version 1)
Quarter: 2025Q2

REPORT INFORMATION
  Report Type: Spontaneous
  Country: CA (occurrence: CA)
  Receive Date: 20250425
  Receipt Date: 20250425
  Transmission Date: 20250717
  Serious: Yes (Life-Threatening)
  Sender: PFIZER
  Company Number: CA-PFIZER INC-202500088443

PATIENT
  Age: 67 Year
  Sex: Female

DRUGS (5)
  1. KETOROLAC TROMETHAMINE [Suspect]
     Active Substance: KETOROLAC TROMETHAMINE
  2. CEPHALEXIN [Concomitant]
     Active Substance: CEPHALEXIN
  3. COLCHICINE [Concomitant]
     Active Substance: COLCHICINE
  4. RAMIPRIL [Concomitant]
     Active Substance: RAMIPRIL
  5. TRAMADOL HYDROCHLORIDE [Concomitant]
     Active Substance: TRAMADOL HYDROCHLORIDE

REACTIONS (2)
  - Abdominal pain [Recovering/Resolving]
  - Duodenal ulcer perforation [Recovering/Resolving]
